FAERS Safety Report 14526311 (Version 3)
Quarter: 2018Q4

REPORT INFORMATION
  Report Type: Spontaneous
  Country: DE (occurrence: DE)
  Receive Date: 20180213
  Receipt Date: 20181120
  Transmission Date: 20190204
  Serious: Yes (Other)
  Sender: FDA-Public Use
  Company Number: DE-AUROBINDO-AUR-APL-2018-005944

PATIENT
  Age: 16 Year
  Sex: Female
  Weight: 67 kg

DRUGS (3)
  1. JAYDESS [Interacting]
     Active Substance: LEVONORGESTREL
     Dosage: 12 MCG/24HR, CONT
     Route: 015
  2. LAMOTRIGINE. [Suspect]
     Active Substance: LAMOTRIGINE
     Indication: EPILEPSY
     Dosage: UNK
     Route: 065
  3. JAYDESS [Interacting]
     Active Substance: LEVONORGESTREL
     Indication: CONTRACEPTION
     Dosage: 14 MCG/24HR, CONT
     Route: 015
     Dates: start: 20141202

REACTIONS (5)
  - Inhibitory drug interaction [Unknown]
  - Drug interaction [Unknown]
  - Drug ineffective [Unknown]
  - Pregnancy with contraceptive device [Unknown]
  - Device dislocation [Unknown]

NARRATIVE: CASE EVENT DATE: 201412
